FAERS Safety Report 25275518 (Version 1)
Quarter: 2025Q2

REPORT INFORMATION
  Report Type: Spontaneous
  Country: US (occurrence: US)
  Receive Date: 20250506
  Receipt Date: 20250506
  Transmission Date: 20250717
  Serious: No
  Sender: PADAGIS
  Company Number: US-PADAGIS-2025PAD00522

PATIENT

DRUGS (1)
  1. HYDROCORTISONE ACETATE [Suspect]
     Active Substance: HYDROCORTISONE ACETATE
     Indication: Haemorrhoidal haemorrhage
     Route: 065
     Dates: start: 20250204, end: 20250228

REACTIONS (2)
  - Diarrhoea [Unknown]
  - Drug ineffective [Unknown]
